FAERS Safety Report 8922853 (Version 1)
Quarter: 2012Q4

REPORT INFORMATION
  Report Type: 
  Country: US (occurrence: US)
  Receive Date: 20121123
  Receipt Date: 20121123
  Transmission Date: 20130627
  Serious: Yes (Other)
  Sender: FDA-Public Use
  Company Number: PHEH2012US022628

PATIENT
  Sex: Female

DRUGS (13)
  1. DIOVAN HCT [Suspect]
  2. DIOVAN [Suspect]
     Indication: HYPERTENSION
     Dosage: 160 mg
  3. DIOVAN [Suspect]
     Dosage: 320 mg, half pill daily
     Dates: start: 2004
  4. HYDROCHLOROTHIAZIDE [Suspect]
  5. LETROZOLE [Concomitant]
  6. ASPIRIN [Concomitant]
  7. FISH OIL [Concomitant]
  8. OMEGA 3 [Concomitant]
  9. VITAMIN B 12 [Concomitant]
  10. VITAMIN E [Concomitant]
  11. VITAMIN D [Concomitant]
  12. MULTIVIT [Concomitant]
  13. CALCIUM [Concomitant]

REACTIONS (3)
  - Breast cancer [Unknown]
  - Headache [Unknown]
  - Wrong technique in drug usage process [Unknown]
